FAERS Safety Report 24684164 (Version 1)
Quarter: 2024Q4

REPORT INFORMATION
  Report Type: Spontaneous
  Country: US (occurrence: US)
  Receive Date: 20241202
  Receipt Date: 20241202
  Transmission Date: 20250115
  Serious: Yes (Other)
  Sender: AMGEN
  Company Number: US-AMGEN-USASP2024235835

PATIENT

DRUGS (3)
  1. INFLIXIMAB [Suspect]
     Active Substance: INFLIXIMAB
     Indication: Ulcerative keratitis
     Dosage: UNK
     Route: 065
  2. RITUXIMAB [Suspect]
     Active Substance: RITUXIMAB
     Indication: Ulcerative keratitis
     Dosage: UNK
     Route: 065
  3. ETANERCEPT [Suspect]
     Active Substance: ETANERCEPT
     Indication: Ulcerative keratitis
     Dosage: UNK
     Route: 065

REACTIONS (5)
  - Corneal perforation [Unknown]
  - Glaucoma [Unknown]
  - Scleritis [Unknown]
  - Corneal epithelium defect [Unknown]
  - Off label use [Unknown]
